FAERS Safety Report 4935678-7 (Version None)
Quarter: 2006Q1

REPORT INFORMATION
  Report Type: 
  Country: None (occurrence: None)
  Receive Date: 20060307
  Receipt Date: 20051031
  Transmission Date: 20060701
  Serious: No
  Sender: FDA-Public Use
  Company Number: US-GLAXOSMITHKLINE-A0580287A

PATIENT
  Sex: Female

DRUGS (4)
  1. REQUIP [Suspect]
     Indication: RESTLESS LEGS SYNDROME
     Dosage: .5MG PER DAY
     Route: 048
     Dates: start: 20051001
  2. KETEK [Concomitant]
  3. PREDNISONE [Concomitant]
  4. PREVACID [Concomitant]

REACTIONS (2)
  - DIZZINESS [None]
  - INSOMNIA [None]
